FAERS Safety Report 19645558 (Version 1)
Quarter: 2021Q3

REPORT INFORMATION
  Report Type: Spontaneous
  Country: ES (occurrence: ES)
  Receive Date: 20210802
  Receipt Date: 20210802
  Transmission Date: 20211014
  Serious: Yes (Other)
  Sender: FDA-Public Use
  Company Number: ES-009507513-2107ESP008236

PATIENT
  Sex: Male

DRUGS (1)
  1. PEMBROLIZUMAB. [Suspect]
     Active Substance: PEMBROLIZUMAB
     Indication: METASTATIC MALIGNANT MELANOMA
     Dosage: 2 MG/KG X 13 CYCLES

REACTIONS (2)
  - Pneumonitis [Unknown]
  - Cytomegalovirus infection [Unknown]

NARRATIVE: CASE EVENT DATE: 201703
